FAERS Safety Report 11703455 (Version 1)
Quarter: 2015Q4

REPORT INFORMATION
  Report Type: Spontaneous
  Country: US (occurrence: US)
  Receive Date: 20151105
  Receipt Date: 20151105
  Transmission Date: 20160304
  Serious: No
  Sender: FDA-Public Use
  Company Number: US-ANACOR-2015ANA00124

PATIENT

DRUGS (1)
  1. KERYDIN [Suspect]
     Active Substance: TAVABOROLE

REACTIONS (2)
  - Application site irritation [Unknown]
  - Application site exfoliation [Unknown]
